FAERS Safety Report 6967459-7 (Version None)
Quarter: 2010Q3

REPORT INFORMATION
  Report Type: 
  Country: None (occurrence: None)
  Receive Date: 20100907
  Receipt Date: 20100903
  Transmission Date: 20110219
  Serious: Yes (Life-Threatening, Hospitalization, Disabling, Other)
  Sender: FDA-Public Use
  Company Number: AU-ASTRAZENECA-2010SE40641

PATIENT
  Age: 25728 Day
  Sex: Female

DRUGS (7)
  1. ARIMIDEX [Suspect]
     Indication: BREAST CANCER
     Route: 048
     Dates: start: 20060801
  2. ARICEPT [Concomitant]
  3. ALENDRONATE SODIUM [Concomitant]
  4. ATENOLOL [Concomitant]
  5. PERINDOPRIL ERBUMINE [Concomitant]
  6. SIMVASTATIN [Concomitant]
  7. ASASANTIN [Concomitant]

REACTIONS (1)
  - SICK SINUS SYNDROME [None]
